FAERS Safety Report 26059289 (Version 1)
Quarter: 2025Q4

REPORT INFORMATION
  Report Type: Spontaneous
  Country: US (occurrence: None)
  Receive Date: 20251117
  Receipt Date: 20251117
  Transmission Date: 20260118
  Serious: Yes (Hospitalization)
  Sender: FDA-CTU
  Company Number: None

PATIENT
  Age: 45 Year
  Sex: Female

DRUGS (12)
  1. HUMIRA [Suspect]
     Active Substance: ADALIMUMAB
     Indication: Rheumatoid arthritis
     Dosage: OTHER QUANTITY : 40MG/0.4ML;?FREQUENCY : EVERY OTHER WEEK;?
     Route: 058
  2. OMEPRAZOLE [Concomitant]
     Active Substance: OMEPRAZOLE
  3. COZAAR [Concomitant]
     Active Substance: LOSARTAN POTASSIUM
  4. DICLOFENAC [Concomitant]
     Active Substance: DICLOFENAC
  5. GLIPIZIDE [Concomitant]
     Active Substance: GLIPIZIDE
  6. METFORMIN [Concomitant]
     Active Substance: METFORMIN HYDROCHLORIDE
  7. NAPROXEN [Concomitant]
     Active Substance: NAPROXEN
  8. ARAVA [Concomitant]
     Active Substance: LEFLUNOMIDE
  9. BACLOFEN [Concomitant]
     Active Substance: BACLOFEN
  10. OZEMPIC [Concomitant]
     Active Substance: SEMAGLUTIDE
  11. PLAQUENIL [Concomitant]
     Active Substance: HYDROXYCHLOROQUINE SULFATE
  12. VITAMIN D2 [Concomitant]
     Active Substance: ERGOCALCIFEROL

REACTIONS (3)
  - Urinary tract infection [None]
  - Therapy interrupted [None]
  - Rheumatoid arthritis [None]

NARRATIVE: CASE EVENT DATE: 20251111
